FAERS Safety Report 18203608 (Version 1)
Quarter: 2020Q3

REPORT INFORMATION
  Report Type: Spontaneous
  Country: FR (occurrence: FR)
  Receive Date: 20200827
  Receipt Date: 20200827
  Transmission Date: 20201103
  Serious: Yes (Hospitalization)
  Sender: FDA-Public Use
  Company Number: FR-MYLANLABS-2020M1073259

PATIENT
  Age: 6 Month
  Sex: Male
  Weight: 7.43 kg

DRUGS (7)
  1. COLECALCIFEROL [Suspect]
     Active Substance: CHOLECALCIFEROL
     Indication: VITAMIN SUPPLEMENTATION
     Dosage: 3 GTT DROPS, QD
     Route: 048
     Dates: start: 202002
  2. LEVETIRACETAM. [Suspect]
     Active Substance: LEVETIRACETAM
     Indication: EPILEPSY
     Dosage: 300 MILLIGRAM, QD
     Route: 048
     Dates: start: 20200226
  3. PARACETAMOL [Suspect]
     Active Substance: ACETAMINOPHEN
     Indication: ANALGESIC THERAPY
     Dosage: 1 DOSAGE FORM, PRN
     Route: 048
     Dates: start: 202003
  4. MELATONINE [Suspect]
     Active Substance: MELATONIN
     Indication: PRODUCT USED FOR UNKNOWN INDICATION
     Dosage: 3 MILLIGRAM, QD
     Route: 048
     Dates: start: 20200508
  5. VIGABATRINE [Suspect]
     Active Substance: VIGABATRIN
     Indication: EPILEPSY
     Dosage: 1000 MILLIGRAM, QD
     Route: 048
     Dates: start: 20200504
  6. PHENYTOINE [Suspect]
     Active Substance: PHENYTOIN
     Indication: EPILEPSY
     Dosage: 210 MILLIGRAM, QD
     Route: 048
     Dates: start: 20200504
  7. PHOSPHALUGEL /00488501/ [Suspect]
     Active Substance: ALUMINUM PHOSPHATE
     Indication: ABDOMINAL PAIN UPPER
     Dosage: 2 MILLILITER, Q4H
     Route: 048
     Dates: start: 20200524, end: 20200720

REACTIONS (1)
  - Pancytopenia [Recovered/Resolved]

NARRATIVE: CASE EVENT DATE: 20200721
